FAERS Safety Report 8271175-1 (Version None)
Quarter: 2012Q2

REPORT INFORMATION
  Report Type: 
  Country: None (occurrence: None)
  Receive Date: 20120410
  Receipt Date: 20120326
  Transmission Date: 20120825
  Serious: Yes (Other)
  Sender: FDA-Public Use
  Company Number: CA-ROCHE-1053696

PATIENT
  Sex: Female

DRUGS (2)
  1. HERCEPTIN [Suspect]
     Dates: start: 20111201, end: 20120301
  2. HERCEPTIN [Suspect]
     Indication: BREAST CANCER
     Dates: start: 20090101

REACTIONS (3)
  - ILL-DEFINED DISORDER [None]
  - BREAST CANCER RECURRENT [None]
  - COGNITIVE DISORDER [None]
